FAERS Safety Report 13090263 (Version 2)
Quarter: 2017Q1

REPORT INFORMATION
  Report Type: Spontaneous
  Country: FR (occurrence: FR)
  Receive Date: 20170105
  Receipt Date: 20170119
  Transmission Date: 20170428
  Serious: Yes (Hospitalization, Other)
  Sender: FDA-Public Use
  Company Number: FR-PFIZER INC-2017000301

PATIENT
  Age: 51 Year
  Sex: Female

DRUGS (28)
  1. ATARAX [Suspect]
     Active Substance: HYDROXYZINE HYDROCHLORIDE
     Dosage: UNK
     Dates: start: 20150214, end: 20150425
  2. VOLTARENE [Suspect]
     Active Substance: DICLOFENAC SODIUM
     Dosage: UNK
     Route: 048
     Dates: start: 20150331, end: 20160414
  3. THERALENE [Suspect]
     Active Substance: TRIMEPRAZINE
     Dosage: 40 MG, DAILY
     Dates: start: 20150316, end: 20150425
  4. LOXEN [Concomitant]
     Active Substance: NICARDIPINE HYDROCHLORIDE
     Dosage: UNK
     Dates: start: 20150223, end: 20150426
  5. ZARZIO [Concomitant]
     Active Substance: FILGRASTIM
  6. PERINDOPRIL [Concomitant]
     Active Substance: PERINDOPRIL
     Dosage: UNK
  7. BACTRIM [Suspect]
     Active Substance: SULFAMETHOXAZOLE\TRIMETHOPRIM
     Dosage: UNK
     Route: 048
     Dates: start: 20150228, end: 20150425
  8. FOSAVANCE [Suspect]
     Active Substance: ALENDRONATE SODIUM\CHOLECALCIFEROL
     Dosage: 70 MG, DAILY
     Route: 048
     Dates: start: 20150224, end: 20150425
  9. OXYCONTIN [Suspect]
     Active Substance: OXYCODONE HYDROCHLORIDE
     Dosage: UNK
     Dates: start: 20150416, end: 20150430
  10. MOVICOL [Concomitant]
     Active Substance: POLYETHYLENE GLYCOL 3350\POTASSIUM CHLORIDE\SODIUM BICARBONATE\SODIUM CHLORIDE
  11. OXYNORM [Suspect]
     Active Substance: OXYCODONE HYDROCHLORIDE
     Dosage: UNK
     Dates: start: 20150212, end: 20150430
  12. KEPPRA [Suspect]
     Active Substance: LEVETIRACETAM
     Dosage: UNK
     Dates: start: 20150211, end: 20150302
  13. LEVOTHYROX [Concomitant]
     Active Substance: LEVOTHYROXINE
  14. LEVEMIR [Concomitant]
     Active Substance: INSULIN DETEMIR
  15. LYRICA [Suspect]
     Active Substance: PREGABALIN
     Dosage: UNK
     Route: 048
     Dates: start: 20150301, end: 20150425
  16. CORTANCYL [Concomitant]
     Active Substance: PREDNISONE
  17. VERSATIS [Concomitant]
     Active Substance: LIDOCAINE
  18. VITAMIN B9 [Concomitant]
  19. VITAMIN B12 [Concomitant]
     Active Substance: CYANOCOBALAMIN
  20. CYMBALTA [Suspect]
     Active Substance: DULOXETINE HYDROCHLORIDE
     Dosage: UNK
     Route: 048
     Dates: start: 20150413, end: 20150430
  21. DOLIPRANE [Concomitant]
     Active Substance: ACETAMINOPHEN
     Dosage: UNK
     Dates: start: 20150326, end: 20160425
  22. HYPERIUM [Concomitant]
     Active Substance: RILMENIDINE PHOSPHATE
  23. DUROGESIC [Concomitant]
     Active Substance: FENTANYL
  24. NEFOPAM MYLAN [Suspect]
     Active Substance: NEFOPAM
     Dosage: UNK
     Dates: start: 20150216, end: 20150424
  25. CALCIDOSE [Concomitant]
     Active Substance: CALCIUM CARBONATE
  26. INEXIUM [Suspect]
     Active Substance: ESOMEPRAZOLE
     Dosage: UNK
     Dates: start: 20150128, end: 20150424
  27. ENDOXAN [Suspect]
     Active Substance: CYCLOPHOSPHAMIDE
     Indication: NEUROPSYCHIATRIC LUPUS
     Dosage: 1 DF, MONTHLY (DAY1 ON 24FEB2015, DAY2 ON 10MAR2015, DAY3 ON 24MAR2015 AND DAY4 ON 21APR2015)
     Dates: start: 20150224, end: 20150421
  28. NOVORAPID [Concomitant]
     Active Substance: INSULIN ASPART

REACTIONS (8)
  - Stevens-Johnson syndrome [Recovered/Resolved]
  - Pneumonia viral [Recovered/Resolved]
  - Pneumonia pneumococcal [Recovered/Resolved]
  - Cytomegalovirus oesophagitis [Recovered/Resolved]
  - Rash [Recovered/Resolved]
  - Acute respiratory distress syndrome [Recovered/Resolved]
  - Pyrexia [Recovered/Resolved]
  - Gastrointestinal haemorrhage [Recovered/Resolved]

NARRATIVE: CASE EVENT DATE: 20150421
